FAERS Safety Report 5177851-1 (Version None)
Quarter: 2006Q4

REPORT INFORMATION
  Report Type: 
  Country: None (occurrence: None)
  Receive Date: 20061208
  Receipt Date: 20061129
  Transmission Date: 20070319
  Serious: Yes (Hospitalization, Other)
  Sender: FDA-Public Use
  Company Number: 2006147720

PATIENT
  Age: 36 Year
  Sex: Female

DRUGS (5)
  1. PRAZEPAM [Suspect]
     Dates: start: 20060101
  2. XANAX [Suspect]
     Dates: start: 20060101
  3. ANAFRANIL [Suspect]
     Indication: MAJOR DEPRESSION
     Dosage: (75 MG), ORAL
     Route: 048
     Dates: start: 20060101, end: 20060101
  4. AMOXAPINE [Suspect]
     Dosage: 300 MG (300 MG, 1 IN 1 D), ORAL
     Route: 048
     Dates: start: 20060101
  5. HAVLANE (LOPRAZOLAM MESILATE) [Concomitant]

REACTIONS (2)
  - ABORTION SPONTANEOUS [None]
  - DRUG EXPOSURE DURING PREGNANCY [None]
